FAERS Safety Report 8533495-2 (Version None)
Quarter: 2012Q3

REPORT INFORMATION
  Report Type: 
  Country: None (occurrence: None)
  Receive Date: 20120724
  Receipt Date: 20120716
  Transmission Date: 20120928
  Serious: Yes (Other)
  Sender: FDA-Public Use
  Company Number: US-ELI_LILLY_AND_COMPANY-US201102006058

PATIENT
  Sex: Male

DRUGS (3)
  1. CIALIS [Suspect]
     Dosage: 20 MG, PRN
  2. NITROGLYCERIN [Concomitant]
  3. CIALIS [Suspect]
     Indication: ERECTILE DYSFUNCTION
     Dosage: 10 MG, AS NEEDED
     Dates: start: 20070101

REACTIONS (6)
  - PHOTOPSIA [None]
  - FLUSHING [None]
  - PROSTATE CANCER [None]
  - UNDERDOSE [None]
  - DRY EYE [None]
  - HEADACHE [None]
